FAERS Safety Report 18335316 (Version 1)
Quarter: 2020Q4

REPORT INFORMATION
  Report Type: Report from Study
  Country: CO (occurrence: CO)
  Receive Date: 20201001
  Receipt Date: 20201001
  Transmission Date: 20210113
  Serious: Yes (Other)
  Sender: FDA-Public Use
  Company Number: NVSC2020CO263679

PATIENT
  Sex: Female
  Weight: 88 kg

DRUGS (3)
  1. CARVEDILOL. [Suspect]
     Active Substance: CARVEDILOL
     Indication: HYPERTENSION
     Dosage: 0.625 MG, BID, 8 YEARS AGO APPROXIMATELY
     Route: 048
  2. LODIPINE [Concomitant]
     Indication: HYPERTENSION
     Dosage: 5 MG, QD, 2 YEARS AGO
     Route: 048
  3. LOSARTAN. [Concomitant]
     Active Substance: LOSARTAN
     Indication: HYPERTENSION
     Dosage: 100MG/50MG, BID, 15 YEARS AGO
     Route: 048

REACTIONS (2)
  - Inappropriate schedule of product administration [Unknown]
  - Breast cancer [Unknown]
